FAERS Safety Report 15051667 (Version 1)
Quarter: 2018Q2

REPORT INFORMATION
  Report Type: Spontaneous
  Country: US (occurrence: US)
  Receive Date: 20180601
  Receipt Date: 20180601
  Transmission Date: 20180711
  Serious: Yes (Hospitalization)
  Sender: FDA-Public Use
  Company Number: None

PATIENT
  Age: 77 Year
  Sex: Male

DRUGS (1)
  1. RISPERIDONE. [Suspect]
     Active Substance: RISPERIDONE
     Indication: SCHIZOAFFECTIVE DISORDER
     Route: 030
     Dates: start: 20110830, end: 20180110

REACTIONS (11)
  - Cough [None]
  - Confusional state [None]
  - Mental status changes [None]
  - Pyrexia [None]
  - Therapy change [None]
  - Asthenia [None]
  - Dyspnoea [None]
  - Aspiration [None]
  - Tachycardia [None]
  - Neuroleptic malignant syndrome [None]
  - Muscle rigidity [None]

NARRATIVE: CASE EVENT DATE: 20171230
